FAERS Safety Report 14064320 (Version 1)
Quarter: 2017Q4

REPORT INFORMATION
  Report Type: Other
  Country: FR (occurrence: FR)
  Receive Date: 20171009
  Receipt Date: 20171009
  Transmission Date: 20180321
  Serious: Yes (Other)
  Sender: FDA-Public Use
  Company Number: FR-COVIS PHARMA B.V.-2017COV00528

PATIENT
  Age: 64 Year
  Sex: Male

DRUGS (4)
  1. RILUTEK [Suspect]
     Active Substance: RILUZOLE
     Indication: AMYOTROPHIC LATERAL SCLEROSIS
     Dosage: 50 MG, 2X/DAY
     Route: 048
     Dates: start: 201410
  2. LEVOCARNIL [Concomitant]
     Active Substance: LEVOCARNITINE
  3. LIORESAL [Suspect]
     Active Substance: BACLOFEN
     Indication: AMYOTROPHIC LATERAL SCLEROSIS
     Dosage: 2 DF IN THE MORNING, 1 DF AT NOON AND 2 DF IN THE EVENING
     Route: 048
     Dates: start: 201410
  4. XANAX [Concomitant]
     Active Substance: ALPRAZOLAM

REACTIONS (2)
  - Lymphopenia [Not Recovered/Not Resolved]
  - Haemolytic anaemia [Not Recovered/Not Resolved]

NARRATIVE: CASE EVENT DATE: 201412
